FAERS Safety Report 6068592-7 (Version None)
Quarter: 2009Q1

REPORT INFORMATION
  Report Type: 
  Country: None (occurrence: None)
  Receive Date: 20090206
  Receipt Date: 20090206
  Transmission Date: 20090719
  Serious: Yes (Other)
  Sender: FDA-Public Use
  Company Number: US-PFIZER INC-2008159569

PATIENT
  Sex: Male
  Weight: 90.718 kg

DRUGS (3)
  1. TIKOSYN [Suspect]
     Indication: ATRIAL FIBRILLATION
     Dosage: 500 UG, 2X/DAY
     Dates: start: 20050101
  2. COUMADIN [Concomitant]
     Indication: HEART RATE INCREASED
     Dosage: UNK
  3. TOPROL-XL [Concomitant]
     Indication: HEART RATE INCREASED
     Dosage: UNK

REACTIONS (4)
  - ATRIAL FIBRILLATION [None]
  - CHOLELITHIASIS [None]
  - PLEURISY [None]
  - PNEUMONIA [None]
